FAERS Safety Report 12471015 (Version 1)
Quarter: 2016Q2

REPORT INFORMATION
  Report Type: Spontaneous
  Country: CA (occurrence: CA)
  Receive Date: 20160616
  Receipt Date: 20160616
  Transmission Date: 20160815
  Serious: Yes (Other)
  Sender: FDA-Public Use
  Company Number: CA-ASTRAZENECA-2016SE64283

PATIENT
  Age: 72 Year
  Sex: Female

DRUGS (17)
  1. CITALOPRAM [Concomitant]
     Active Substance: CITALOPRAM HYDROBROMIDE
  2. SENNOSIDES. [Concomitant]
     Active Substance: SENNOSIDES
  3. JAMP-K [Concomitant]
  4. ONGLYZA [Suspect]
     Active Substance: SAXAGLIPTIN HYDROCHLORIDE
     Indication: TYPE 2 DIABETES MELLITUS
     Route: 048
  5. ADVAIR HFA [Concomitant]
     Active Substance: FLUTICASONE PROPIONATE\SALMETEROL XINAFOATE
  6. CALCIUM [Concomitant]
     Active Substance: CALCIUM
  7. NITRAZEPAM [Concomitant]
     Active Substance: NITRAZEPAM
  8. TUDORZA GENUAIR [Concomitant]
     Active Substance: ACLIDINIUM BROMIDE
     Dosage: ORAL INHALATION. 1 INHALER WITH 30 ACTUATIONS + 1 INHALER WITH 60 ACTUATIONS
  9. DOCUSATE SODIUM. [Concomitant]
     Active Substance: DOCUSATE SODIUM
  10. DOMPERIDONE [Concomitant]
     Active Substance: DOMPERIDONE
  11. FUROSEMIDE. [Concomitant]
     Active Substance: FUROSEMIDE
  12. METFORMIN [Concomitant]
     Active Substance: METFORMIN HYDROCHLORIDE
  13. LORAZEPAM. [Concomitant]
     Active Substance: LORAZEPAM
  14. PANTOPRAZOLE [Concomitant]
     Active Substance: PANTOPRAZOLE SODIUM
  15. ATORVASTATIN [Concomitant]
     Active Substance: ATORVASTATIN
  16. ALENDRONATE/CHOLECA [Concomitant]
  17. VITAMIN B12 [Concomitant]
     Active Substance: CYANOCOBALAMIN

REACTIONS (3)
  - Cardiac failure [Recovered/Resolved]
  - Concomitant disease aggravated [Unknown]
  - Peripheral swelling [Unknown]
